FAERS Safety Report 16748572 (Version 1)
Quarter: 2019Q3

REPORT INFORMATION
  Report Type: Spontaneous
  Country: US (occurrence: US)
  Receive Date: 20190828
  Receipt Date: 20190828
  Transmission Date: 20191005
  Serious: Yes (Death, Other)
  Sender: FDA-Public Use
  Company Number: US-SHILPA MEDICARE LIMITED-SML-US-2019-00180

PATIENT
  Age: 54 Year
  Sex: Male

DRUGS (1)
  1. AZACITIDINE, UNKNOWN [Suspect]
     Active Substance: AZACITIDINE
     Indication: ACUTE MYELOID LEUKAEMIA
     Route: 065

REACTIONS (4)
  - Death [Fatal]
  - Hepatosplenic candidiasis [Unknown]
  - Febrile neutropenia [Unknown]
  - Product use in unapproved indication [Unknown]
